FAERS Safety Report 5736958-8 (Version None)
Quarter: 2008Q2

REPORT INFORMATION
  Report Type: 
  Country: None (occurrence: None)
  Receive Date: 20080513
  Receipt Date: 20080513
  Transmission Date: 20081010
  Serious: Yes (Other)
  Sender: FDA-Public Use
  Company Number: None

PATIENT
  Sex: Male
  Weight: 12.7007 kg

DRUGS (3)
  1. CEFDINIR SUSPENSION 125 MG SANDOZ [Suspect]
     Indication: EAR INFECTION
     Dosage: 1.5 TEASPOONS 2X/DAY PO WILL CONTINUE FOR 3 WEEKS
     Route: 048
     Dates: start: 20080510, end: 20080512
  2. CEFDINIR SUSPENSION 125 MG SANDOZ [Suspect]
     Indication: SINUSITIS
     Dosage: 1.5 TEASPOONS 2X/DAY PO WILL CONTINUE FOR 3 WEEKS
     Route: 048
     Dates: start: 20080510, end: 20080512
  3. CEFDINIR SUSPENSION 125 MG SANDOZ [Suspect]
     Indication: SKIN DISORDER
     Dosage: 1.5 TEASPOONS 2X/DAY PO WILL CONTINUE FOR 3 WEEKS
     Route: 048
     Dates: start: 20080510, end: 20080512

REACTIONS (7)
  - DERMATITIS DIAPER [None]
  - DIARRHOEA HAEMORRHAGIC [None]
  - DRUG DISPENSING ERROR [None]
  - DRUG PRESCRIBING ERROR [None]
  - FAECES DISCOLOURED [None]
  - INCORRECT DOSE ADMINISTERED [None]
  - MEDICATION ERROR [None]
